FAERS Safety Report 15031127 (Version 2)
Quarter: 2018Q2

REPORT INFORMATION
  Report Type: Report from Study
  Country: DE (occurrence: DE)
  Receive Date: 20180619
  Receipt Date: 20180622
  Transmission Date: 20180711
  Serious: Yes (Other)
  Sender: FDA-Public Use
  Company Number: DE-JNJFOC-20180612741

PATIENT
  Age: 62 Year
  Sex: Male
  Weight: 50 kg

DRUGS (3)
  1. DARZALEX [Suspect]
     Active Substance: DARATUMUMAB
     Indication: PLASMA CELL MYELOMA
     Route: 042
     Dates: start: 201705, end: 201706
  2. REVLIMID [Concomitant]
     Active Substance: LENALIDOMIDE
     Route: 065
  3. DEXAMETHASONE. [Concomitant]
     Active Substance: DEXAMETHASONE
     Route: 065

REACTIONS (1)
  - Therapy non-responder [Recovered/Resolved]

NARRATIVE: CASE EVENT DATE: 201705
